FAERS Safety Report 6370967-3 (Version None)
Quarter: 2009Q3

REPORT INFORMATION
  Report Type: 
  Country: None (occurrence: None)
  Receive Date: 20090923
  Receipt Date: 20070425
  Transmission Date: 20100115
  Serious: Yes (Hospitalization, Disabling)
  Sender: FDA-Public Use
  Company Number: US-ASTRAZENECA-2006UW23141

PATIENT
  Age: 34 Year
  Sex: Female
  Weight: 98.9 kg

DRUGS (6)
  1. SEROQUEL [Suspect]
     Indication: BIPOLAR DISORDER
     Dosage: 200 - 300 MG/DAY, TOTAL DAILY DOSE 300 MG
     Route: 048
     Dates: start: 20020101
  2. SEROQUEL [Suspect]
     Dosage: 200 MG - 300 MG DISPENSED, 600 MG
     Route: 048
     Dates: start: 20021203
  3. HALDOL [Concomitant]
     Dosage: TOTAL DAILY DOSE 0.5 MG
     Dates: start: 20010601
  4. ZYPREXA [Concomitant]
     Dosage: TOTAL DAILY DOSE 10 MG
     Dates: start: 20020601
  5. ZANTAC [Concomitant]
     Dates: start: 20030724
  6. ZOLOFT [Concomitant]
     Dates: start: 20010713

REACTIONS (3)
  - DIABETES MELLITUS [None]
  - SYNCOPE [None]
  - TYPE 2 DIABETES MELLITUS [None]
